FAERS Safety Report 8620659-2 (Version None)
Quarter: 2012Q3

REPORT INFORMATION
  Report Type: 
  Country: None (occurrence: None)
  Receive Date: 20120824
  Receipt Date: 20120821
  Transmission Date: 20120928
  Serious: Yes (Other)
  Sender: FDA-Public Use
  Company Number: US-ACTELION-A-US2012-60536

PATIENT
  Age: 61 Year
  Sex: Female

DRUGS (8)
  1. VENTAVIS [Suspect]
     Indication: PULMONARY ARTERIAL HYPERTENSION
     Dosage: UNK, X6/DAY
     Route: 055
     Dates: start: 20111031
  2. ASPIRIN [Concomitant]
  3. VITAMIN D [Concomitant]
  4. TRACLEER [Suspect]
     Indication: PULMONARY ARTERIAL HYPERTENSION
     Dosage: 125 MG, BID
     Route: 048
     Dates: start: 20090715
  5. PLAVIX [Concomitant]
  6. CELEXA [Concomitant]
  7. LOVAZA [Concomitant]
  8. VENTAVIS [Suspect]
     Dosage: 5 MCG, UNK
     Route: 055
     Dates: start: 20111107, end: 20120707

REACTIONS (14)
  - MUCOUS STOOLS [None]
  - NAUSEA [None]
  - ABDOMINAL PAIN [None]
  - ABDOMINAL PAIN UPPER [None]
  - ABDOMINAL DISCOMFORT [None]
  - CONDITION AGGRAVATED [None]
  - RECTAL HAEMORRHAGE [None]
  - IRRITABLE BOWEL SYNDROME [None]
  - HAEMATOCHEZIA [None]
  - DIARRHOEA [None]
  - GASTROINTESTINAL DISORDER [None]
  - RETCHING [None]
  - DIZZINESS [None]
  - VOMITING [None]
